FAERS Safety Report 7968206-2 (Version None)
Quarter: 2011Q4

REPORT INFORMATION
  Report Type: 
  Country: None (occurrence: None)
  Receive Date: 20111207
  Receipt Date: 20111122
  Transmission Date: 20120403
  Serious: No
  Sender: FDA-Public Use
  Company Number: 11-764

PATIENT
  Age: 13 Year
  Sex: Female

DRUGS (1)
  1. IBUPROFEN [Suspect]

REACTIONS (4)
  - STILLBIRTH [None]
  - CEREBRAL HAEMORRHAGE FOETAL [None]
  - PREMATURE DELIVERY [None]
  - MATERNAL DRUGS AFFECTING FOETUS [None]
